FAERS Safety Report 9105154 (Version 3)
Quarter: 2013Q1

REPORT INFORMATION
  Report Type: Spontaneous
  Country: JP (occurrence: JP)
  Receive Date: 20130220
  Receipt Date: 20130313
  Transmission Date: 20140127
  Serious: Yes (Death, Hospitalization)
  Sender: FDA-Public Use
  Company Number: JP-VERTEX PHARMACEUTICALS INC.-2013-002290

PATIENT
  Age: 67 Year
  Sex: Male

DRUGS (23)
  1. TELAVIC [Suspect]
     Indication: HEPATITIS C
     Dosage: 1500 MG, QD
     Route: 048
     Dates: start: 20130109, end: 20130112
  2. TELAVIC [Suspect]
     Dosage: 1000 MG, QD
     Route: 048
     Dates: start: 20130113, end: 20130114
  3. TELAVIC [Suspect]
     Dosage: 500 UNK, UNK
     Route: 048
     Dates: start: 20130115, end: 20130128
  4. TELAVIC [Suspect]
     Dosage: 750 MG, QD
     Dates: start: 20130129, end: 20130207
  5. TELAVIC [Suspect]
     Dosage: 500 MG, QD
     Route: 048
     Dates: start: 20130208, end: 20130209
  6. TELAVIC [Suspect]
     Dosage: UNK
  7. REBETOL [Suspect]
     Indication: HEPATITIS C
     Dosage: 600 MG, QD
     Route: 048
     Dates: start: 20130109, end: 20130113
  8. REBETOL [Suspect]
     Dosage: 200 MG, QD
     Route: 048
     Dates: start: 20130114, end: 20130123
  9. REBETOL [Suspect]
     Dosage: 200 UNK, UNK
     Route: 048
     Dates: start: 20130202, end: 20130209
  10. PEGINTRON [Suspect]
     Indication: HEPATITIS C
     Dosage: 1.5 ?G/KG, QW
     Route: 058
     Dates: start: 20130109, end: 20130117
  11. PEGINTRON [Suspect]
     Dosage: 0.7 ?G/KG, QW
     Route: 058
     Dates: start: 20130118, end: 20130131
  12. PEGINTRON [Suspect]
     Dosage: 0.9 ?G/KG, QW
     Route: 058
     Dates: start: 20130201, end: 20130207
  13. PEGINTRON [Suspect]
     Dosage: 0.7 ?G/KG, QW
     Route: 058
     Dates: start: 20130208, end: 20130208
  14. RYTHMODAN [Suspect]
     Dosage: 300 MG, UNK
     Route: 048
  15. LISPINE R [Suspect]
     Dosage: 300 MG, QD
     Route: 048
     Dates: end: 20130209
  16. LASIX [Suspect]
     Dosage: 20 MG, QD
     Route: 048
     Dates: start: 20130119, end: 20130209
  17. BIOFERMIN [Concomitant]
     Dosage: 3 TABS, QD
     Route: 048
     Dates: end: 20130209
  18. MECOBAMIDE [Concomitant]
     Dosage: 1500 ?G, QD
     Route: 048
     Dates: end: 20130209
  19. SENNOSIDE [Concomitant]
     Dosage: 36 MG, QD
     Route: 048
     Dates: end: 20130209
  20. HARNAL [Concomitant]
     Dosage: 0.2 MG, QD
     Route: 048
     Dates: end: 20130209
  21. LOXONIN [Concomitant]
     Dosage: 60 MG, QD
     Route: 048
     Dates: end: 20130209
  22. MUCOSTA [Concomitant]
     Dosage: 100 MG, QD PRN
     Route: 048
     Dates: end: 20130209
  23. ADALAT CR [Concomitant]
     Dosage: 40 MG, QD
     Route: 048
     Dates: end: 20130209

REACTIONS (11)
  - Decreased appetite [Not Recovered/Not Resolved]
  - Nausea [Not Recovered/Not Resolved]
  - Vomiting [Not Recovered/Not Resolved]
  - Arrhythmia [Fatal]
  - Pyrexia [Recovered/Resolved]
  - Renal impairment [Recovered/Resolved]
  - Oropharyngeal pain [Recovered/Resolved]
  - Hypokalaemia [Not Recovered/Not Resolved]
  - Oedema peripheral [Not Recovered/Not Resolved]
  - Anaemia [Not Recovered/Not Resolved]
  - Dysgeusia [Not Recovered/Not Resolved]
